FAERS Safety Report 23614014 (Version 1)
Quarter: 2024Q1

REPORT INFORMATION
  Report Type: Spontaneous
  Country: DE (occurrence: DE)
  Receive Date: 20240310
  Receipt Date: 20240310
  Transmission Date: 20240410
  Serious: Yes (Hospitalization)
  Sender: FDA-Public Use
  Company Number: DE-SA-SAC20211230000339

PATIENT
  Sex: Female

DRUGS (15)
  1. CARFILZOMIB [Suspect]
     Active Substance: CARFILZOMIB
     Indication: Plasma cell myeloma refractory
     Dosage: 37 MG
     Route: 065
     Dates: start: 20211206, end: 20211207
  2. DEXAMETHASONE [Suspect]
     Active Substance: DEXAMETHASONE
     Indication: Plasma cell myeloma refractory
     Dosage: 20 MG (D1, D2)
     Route: 065
     Dates: start: 20211206, end: 20211207
  3. ISATUXIMAB [Suspect]
     Active Substance: ISATUXIMAB
     Indication: Plasma cell myeloma
     Dosage: 800 MG (D1, D8, D15, D22)
     Route: 065
     Dates: start: 20211206, end: 20211206
  4. POMALIDOMIDE [Suspect]
     Active Substance: POMALIDOMIDE
     Indication: Product used for unknown indication
     Dosage: UNK
     Route: 065
  5. CALCIUM [Concomitant]
     Active Substance: CALCIUM
     Indication: Product used for unknown indication
     Dosage: UNK
     Route: 065
     Dates: start: 20221011
  6. Clemastina [Concomitant]
     Indication: Allergy prophylaxis
     Dosage: UNK
     Route: 065
     Dates: start: 20211206
  7. EPOETIN ALFA [Concomitant]
     Active Substance: ERYTHROPOIETIN
     Indication: Anaemia
     Dosage: UNK
     Route: 065
     Dates: start: 20200717
  8. HUMAN RED BLOOD CELL [Concomitant]
     Active Substance: HUMAN RED BLOOD CELL
     Indication: Product used for unknown indication
     Dosage: UNK
     Route: 065
     Dates: start: 20190219
  9. L-THYROXIN SANDOZ [Concomitant]
     Indication: Hypothyroidism
     Dosage: UNK
     Route: 065
     Dates: start: 2017
  10. LISINOPRIL [Concomitant]
     Active Substance: LISINOPRIL
     Indication: Hypertension
     Dosage: UNK
     Route: 065
     Dates: start: 2017
  11. METHOTREXATE [Concomitant]
     Active Substance: METHOTREXATE
     Indication: Rheumatic disorder
     Dosage: UNK
     Route: 065
     Dates: start: 1992
  12. NOVALGINA [Concomitant]
     Active Substance: ACETAMINOPHEN\CAFFEINE
     Indication: Product used for unknown indication
     Dosage: UNK
     Route: 065
     Dates: start: 2018
  13. ACETAMINOPHEN [Concomitant]
     Active Substance: ACETAMINOPHEN
     Indication: Pyrexia
     Dosage: UNK
     Route: 065
     Dates: start: 20211206
  14. PREDNISOLONE [Concomitant]
     Active Substance: PREDNISOLONE
     Indication: Rheumatic disorder
     Dosage: UNK
     Route: 065
     Dates: start: 2018
  15. VITAMIN B12 [Concomitant]
     Active Substance: CYANOCOBALAMIN
     Indication: Vitamin B12 deficiency
     Dosage: UNK
     Route: 065
     Dates: start: 20181130

REACTIONS (7)
  - Diarrhoea [Recovered/Resolved]
  - Pneumonia [Recovered/Resolved]
  - Neutropenia [Not Recovered/Not Resolved]
  - Cardiac failure [Not Recovered/Not Resolved]
  - Oedema peripheral [Recovered/Resolved]
  - Diarrhoea [Recovered/Resolved]
  - Nausea [Recovered/Resolved]

NARRATIVE: CASE EVENT DATE: 20211206
